FAERS Safety Report 8849030 (Version 2)
Quarter: 2013Q2

REPORT INFORMATION
  Report Type: Spontaneous
  Country: US (occurrence: US)
  Receive Date: 20121019
  Receipt Date: 20130524
  Transmission Date: 20140414
  Serious: Yes (Hospitalization, Other)
  Sender: FDA-Public Use
  Company Number: US-009507513-1202USA01129

PATIENT
  Sex: Female
  Weight: 63.5 kg

DRUGS (4)
  1. FOSAMAX [Suspect]
     Indication: OSTEOPOROSIS
     Dosage: 10 MG, UNK
     Route: 048
     Dates: start: 2000
  2. FOSAMAX [Suspect]
     Indication: OSTEOPENIA
     Dosage: 70 MG, QW
     Route: 048
     Dates: start: 2000
  3. ACTONEL [Suspect]
     Indication: OSTEOPOROSIS
     Dosage: 35 MG, QW
     Route: 048
     Dates: start: 200703
  4. ACTONEL [Suspect]
     Indication: OSTEOPENIA

REACTIONS (60)
  - Femur fracture [Unknown]
  - Appendix disorder [Unknown]
  - Fall [Unknown]
  - Uterine haemorrhage [Unknown]
  - Sinus tachycardia [Unknown]
  - Spinal disorder [Unknown]
  - Back disorder [Unknown]
  - Limb operation [Unknown]
  - Electrocardiogram T wave abnormal [Unknown]
  - Pyrexia [Unknown]
  - Hyperlipidaemia [Unknown]
  - Rotator cuff syndrome [Unknown]
  - Urinary hesitation [Not Recovered/Not Resolved]
  - Low turnover osteopathy [Unknown]
  - Tobacco abuse [Unknown]
  - Fatigue [Unknown]
  - Cough [Not Recovered/Not Resolved]
  - Chronic obstructive pulmonary disease [Unknown]
  - Spinal osteoarthritis [Unknown]
  - Intervertebral disc disorder [Unknown]
  - Epidural fibrosis [Unknown]
  - Blood thyroid stimulating hormone [Unknown]
  - Adverse drug reaction [Unknown]
  - Blood urea increased [Unknown]
  - Blood creatinine increased [Unknown]
  - Paraesthesia [Unknown]
  - Balance disorder [Unknown]
  - Depression [Unknown]
  - Large intestine polyp [Unknown]
  - Insomnia [Unknown]
  - Cerumen impaction [Unknown]
  - Urinary tract infection [Unknown]
  - Renal cyst [Unknown]
  - Hepatic cyst [Unknown]
  - Palpitations [Not Recovered/Not Resolved]
  - Hypercholesterolaemia [Unknown]
  - Sleep apnoea syndrome [Unknown]
  - Carotid bruit [Unknown]
  - Nephrolithiasis [Unknown]
  - Chest pain [Unknown]
  - Thromboangiitis obliterans [Unknown]
  - Chronic obstructive pulmonary disease [Unknown]
  - Subclavian steal syndrome [Unknown]
  - Subclavian artery stenosis [Unknown]
  - Osteoarthritis [Unknown]
  - Pneumonia [Unknown]
  - Staphylococcal infection [Unknown]
  - Pain [Unknown]
  - Muscle strain [Unknown]
  - Depression [Unknown]
  - Hypoaesthesia [Unknown]
  - Abdominal pain upper [Unknown]
  - Oedema peripheral [Unknown]
  - Arthralgia [Unknown]
  - Constipation [Not Recovered/Not Resolved]
  - Dizziness [Unknown]
  - Back pain [Unknown]
  - Drug hypersensitivity [Unknown]
  - Gastrooesophageal reflux disease [Unknown]
  - Pruritus [Unknown]
